FAERS Safety Report 10173696 (Version 1)
Quarter: 2014Q2

REPORT INFORMATION
  Report Type: Spontaneous
  Country: JP (occurrence: JP)
  Receive Date: 20140515
  Receipt Date: 20140515
  Transmission Date: 20141212
  Serious: Yes (Other)
  Sender: FDA-Public Use
  Company Number: JP-ASTELLAS-2014JP006598

PATIENT
  Sex: 0

DRUGS (1)
  1. PROGRAF [Suspect]
     Indication: COLITIS ULCERATIVE
     Route: 048

REACTIONS (1)
  - Renal disorder [Unknown]
